FAERS Safety Report 4483233-8 (Version None)
Quarter: 2004Q3

REPORT INFORMATION
  Report Type: 
  Country: None (occurrence: None)
  Receive Date: 20040921
  Receipt Date: 20040621
  Transmission Date: 20050211
  Serious: Yes (Hospitalization)
  Sender: FDA-Public Use
  Company Number: 163-20785-04060631

PATIENT
  Age: 83 Year
  Sex: Male

DRUGS (1)
  1. THALOMID [Suspect]
     Indication: RENAL CELL CARCINOMA STAGE UNSPECIFIED
     Dosage: 100 MG, DAILY, ORAL
     Route: 048
     Dates: start: 20031209, end: 20040601

REACTIONS (1)
  - DISEASE PROGRESSION [None]
